FAERS Safety Report 7824045-4 (Version None)
Quarter: 2011Q4

REPORT INFORMATION
  Report Type: 
  Country: None (occurrence: None)
  Receive Date: 20111019
  Receipt Date: 20111012
  Transmission Date: 20120403
  Serious: Yes (Hospitalization)
  Sender: FDA-Public Use
  Company Number: PHEH2011US06749

PATIENT
  Sex: Male

DRUGS (1)
  1. EXJADE [Suspect]
     Dosage: 625 MG, QD
     Route: 048

REACTIONS (5)
  - ABDOMINAL DISCOMFORT [None]
  - PYREXIA [None]
  - ABDOMINAL DISTENSION [None]
  - CHILLS [None]
  - WRONG TECHNIQUE IN DRUG USAGE PROCESS [None]
